FAERS Safety Report 14602770 (Version 2)
Quarter: 2018Q2

REPORT INFORMATION
  Report Type: Spontaneous
  Country: CA (occurrence: CA)
  Receive Date: 20180306
  Receipt Date: 20180530
  Transmission Date: 20180711
  Serious: Yes (Other)
  Sender: FDA-Public Use
  Company Number: PHHY2018CA036231

PATIENT
  Sex: Male

DRUGS (3)
  1. ASA [Suspect]
     Active Substance: ASPIRIN
     Indication: CHEST PAIN
     Route: 065
  2. RHO-NITRO PUMPSPRAY [Suspect]
     Active Substance: NITROGLYCERIN
     Indication: CHEST PAIN
     Route: 065
  3. MORPHINE SULFATE INJ USP [Suspect]
     Active Substance: MORPHINE SULFATE
     Indication: CHEST PAIN
     Route: 065

REACTIONS (6)
  - Loss of consciousness [Recovered/Resolved]
  - Seizure [Unknown]
  - Bradycardia [Unknown]
  - Feeling abnormal [Unknown]
  - Pallor [Unknown]
  - Hyperhidrosis [Unknown]
